FAERS Safety Report 24309214 (Version 2)
Quarter: 2025Q2

REPORT INFORMATION
  Report Type: Spontaneous
  Country: US (occurrence: US)
  Receive Date: 20240911
  Receipt Date: 20250428
  Transmission Date: 20250716
  Serious: Yes (Other)
  Sender: BRISTOL-MYERS SQUIBB COMPANY
  Company Number: US-BRISTOL-MYERS SQUIBB COMPANY-2024-140906

PATIENT
  Age: 77 Year
  Sex: Female
  Weight: 44.91 kg

DRUGS (5)
  1. POMALYST [Suspect]
     Active Substance: POMALIDOMIDE
     Indication: Plasma cell myeloma
     Dosage: DAILY FOR 21 DAYS ON, 7 DAYS OFF
     Route: 048
     Dates: start: 20240808, end: 20240906
  2. DARATUMUMAB [Suspect]
     Active Substance: DARATUMUMAB
     Indication: Product used for unknown indication
  3. DEXAMETHASONE [Suspect]
     Active Substance: DEXAMETHASONE
     Indication: Plasma cell myeloma
     Route: 048
     Dates: start: 20240808, end: 20240906
  4. DARZALEX FASPRO [Concomitant]
     Active Substance: DARATUMUMAB\HYALURONIDASE-FIHJ
     Indication: Plasma cell myeloma
     Dosage: 30000 UNITS/15ML
     Route: 058
     Dates: start: 20240808, end: 20240913
  5. ACYCLOVIR [Concomitant]
     Active Substance: ACYCLOVIR
     Indication: Product used for unknown indication
     Dosage: 30000 UNITS/15ML
     Route: 048
     Dates: start: 20240808, end: 20240909

REACTIONS (5)
  - Neuropathy peripheral [Not Recovered/Not Resolved]
  - Mass [Unknown]
  - Plasma cell myeloma [Unknown]
  - Pain [Unknown]
  - Skin texture abnormal [Unknown]
